FAERS Safety Report 26013489 (Version 1)
Quarter: 2025Q4

REPORT INFORMATION
  Report Type: Spontaneous
  Country: US (occurrence: US)
  Receive Date: 20251107
  Receipt Date: 20251107
  Transmission Date: 20260118
  Serious: No
  Sender: PFIZER
  Company Number: US-PFIZER INC-PV202500130859

PATIENT
  Age: 35 Year
  Sex: Male

DRUGS (1)
  1. DOXYCYCLINE HYCLATE [Suspect]
     Active Substance: DOXYCYCLINE HYCLATE
     Indication: Lyme disease
     Dosage: UNK (STARTED AND STOPPED APPROX. 2015)

REACTIONS (4)
  - Malaise [Unknown]
  - Asthenia [Unknown]
  - Quality of life decreased [Unknown]
  - Off label use [Unknown]
